FAERS Safety Report 7662690-X (Version None)
Quarter: 2011Q3

REPORT INFORMATION
  Report Type: 
  Country: None (occurrence: None)
  Receive Date: 20110805
  Receipt Date: 20100907
  Transmission Date: 20111222
  Serious: No
  Sender: FDA-Public Use
  Company Number: US-ABBOTT-10P-163-0670050-00

PATIENT
  Sex: Male
  Weight: 86.26 kg

DRUGS (4)
  1. PLAVIX [Concomitant]
     Indication: PRODUCT USED FOR UNKNOWN INDICATION
     Dates: start: 20091001
  2. LORA TAB [Concomitant]
     Indication: BACK DISORDER
  3. NIASPAN [Suspect]
     Indication: BLOOD CHOLESTEROL INCREASED
     Dates: start: 20100801
  4. TOPROL-XL [Concomitant]
     Indication: HYPERTENSION
     Dates: start: 20080101

REACTIONS (2)
  - FEELING HOT [None]
  - PRURITUS GENERALISED [None]
